FAERS Safety Report 4641626-X (Version None)
Quarter: 2005Q2

REPORT INFORMATION
  Report Type: 
  Country: None (occurrence: None)
  Receive Date: 20050420
  Receipt Date: 20050406
  Transmission Date: 20051028
  Serious: Yes (Hospitalization)
  Sender: FDA-Public Use
  Company Number: WAES 0411USA02455

PATIENT
  Age: 39 Year
  Sex: Male

DRUGS (8)
  1. CRIXIVAN [Suspect]
     Indication: HIV INFECTION
     Dosage: SEE IMAGE
     Route: 048
     Dates: start: 19970501, end: 19991119
  2. CRIXIVAN [Suspect]
     Indication: HIV INFECTION
     Dosage: SEE IMAGE
     Route: 048
     Dates: start: 19991120, end: 20031202
  3. RETROVIR [Suspect]
     Indication: HIV INFECTION
     Dosage: SEE IMAGE
     Route: 048
     Dates: start: 19970417, end: 19971001
  4. RETROVIR [Suspect]
     Indication: HIV INFECTION
     Dosage: SEE IMAGE
     Route: 048
     Dates: start: 19971002, end: 20031203
  5. EPIVIR [Suspect]
     Indication: HIV INFECTION
     Dosage: 150 MG/BID PO
     Route: 048
     Dates: start: 19970417, end: 19970514
  6. EPIVIR [Suspect]
     Indication: HIV INFECTION
     Dosage: 150 MG/BID PO
     Route: 048
     Dates: start: 19971002, end: 20031203
  7. RITONAVIR [Suspect]
     Indication: HIV INFECTION
     Dosage: 400 MG/DAILY PO
     Route: 048
     Dates: start: 19991120, end: 20031202
  8. KALETRA [Suspect]
     Indication: HIV INFECTION
     Dosage: 6 DOSE/DAILY PO
     Route: 048
     Dates: start: 20031202, end: 20031203

REACTIONS (6)
  - ABDOMINAL PAIN UPPER [None]
  - ADENOMYOSIS [None]
  - CALCULUS URINARY [None]
  - GALLBLADDER DISORDER [None]
  - RENAL FAILURE ACUTE [None]
  - THERAPY NON-RESPONDER [None]
